FAERS Safety Report 8017352-6 (Version None)
Quarter: 2012Q1

REPORT INFORMATION
  Report Type: 
  Country: None (occurrence: None)
  Receive Date: 20120102
  Receipt Date: 20111228
  Transmission Date: 20120608
  Serious: Yes (Other)
  Sender: FDA-Public Use
  Company Number: US-ROCHE-1025944

PATIENT
  Sex: Female

DRUGS (1)
  1. BONIVA [Suspect]
     Indication: OSTEOPOROSIS
     Route: 048

REACTIONS (9)
  - POLLAKIURIA [None]
  - BACK PAIN [None]
  - URINARY INCONTINENCE [None]
  - HEART RATE IRREGULAR [None]
  - CARBON DIOXIDE ABNORMAL [None]
  - MULTIPLE FRACTURES [None]
  - ABDOMINAL PAIN UPPER [None]
  - PAIN [None]
  - NASOPHARYNGITIS [None]
